FAERS Safety Report 6072444-6 (Version None)
Quarter: 2009Q1

REPORT INFORMATION
  Report Type: 
  Country: None (occurrence: None)
  Receive Date: 20090210
  Receipt Date: 20090206
  Transmission Date: 20090719
  Serious: Yes (Other)
  Sender: FDA-Public Use
  Company Number: IT-BRISTOL-MYERS SQUIBB COMPANY-14497424

PATIENT
  Age: 88 Year
  Sex: Female

DRUGS (4)
  1. IRBESARTAN [Suspect]
     Dosage: DUR- 1 YEAR 4 WEEKS 6 DAYS
     Route: 048
     Dates: start: 20080101, end: 20090202
  2. CORDARONE [Suspect]
     Indication: ATRIAL TACHYCARDIA
     Dosage: FORMULATION- TABS,DUR- 1 YEAR 4 WEEKS 6 DAYS
     Route: 048
     Dates: start: 20080101, end: 20090202
  3. ASPIRIN [Concomitant]
     Route: 048
  4. PANTECTA [Concomitant]
     Route: 048

REACTIONS (3)
  - HYPOTENSION [None]
  - LOSS OF CONSCIOUSNESS [None]
  - SYNCOPE [None]
